FAERS Safety Report 4506716-0 (Version None)
Quarter: 2004Q4

REPORT INFORMATION
  Report Type: 
  Country: None (occurrence: None)
  Receive Date: 20041122
  Receipt Date: 20041111
  Transmission Date: 20050328
  Serious: Yes (Life-Threatening, Hospitalization, Disabling)
  Sender: FDA-Public Use
  Company Number: US-MERCK-0411USA02153

PATIENT
  Sex: Female

DRUGS (1)
  1. VIOXX [Suspect]
     Indication: SKELETAL INJURY
     Route: 048
     Dates: start: 20020101

REACTIONS (2)
  - ADVERSE EVENT [None]
  - PARALYSIS [None]
